FAERS Safety Report 10243637 (Version 1)
Quarter: 2014Q2

REPORT INFORMATION
  Report Type: Spontaneous
  Country: US (occurrence: US)
  Receive Date: 20140618
  Receipt Date: 20140618
  Transmission Date: 20141212
  Serious: No
  Sender: FDA-Public Use
  Company Number: US-PFIZER INC-2014165385

PATIENT
  Sex: Female

DRUGS (2)
  1. ADVIL [Suspect]
     Indication: BACK PAIN
     Dosage: 400 MG (2 TABLETS OF 200 MG), UNK
     Dates: start: 201406
  2. VENTOLIN [Concomitant]
     Indication: RESPIRATORY DISORDER
     Dosage: UNK(2 PUFFS), AS NEEDED

REACTIONS (1)
  - Urticaria [Not Recovered/Not Resolved]
